FAERS Safety Report 8470622-X (Version None)
Quarter: 2012Q2

REPORT INFORMATION
  Report Type: 
  Country: None (occurrence: None)
  Receive Date: 20120627
  Receipt Date: 20120625
  Transmission Date: 20120825
  Serious: Yes (Other)
  Sender: FDA-Public Use
  Company Number: PHEH2011US009235

PATIENT
  Sex: Female
  Weight: 73.787 kg

DRUGS (10)
  1. COQ10 [Concomitant]
     Dosage: UNK UKN, UNK
  2. GILENYA [Suspect]
     Indication: MULTIPLE SCLEROSIS
     Dosage: 1 DF, QD
     Route: 048
     Dates: start: 20111027, end: 20120412
  3. CYMBALTA [Concomitant]
     Dosage: UNK UKN, UNK
  4. TOPAMAX [Concomitant]
     Indication: CONVULSION
     Dosage: 3 DF, BID
     Route: 048
  5. PHENERGAN [Concomitant]
     Dosage: UNK UKN, UNK
  6. VITAMIN D [Concomitant]
     Dosage: 2000 UKN, BID
  7. TEGRETOL [Concomitant]
     Dosage: UNK UKN, UNK
  8. GABAPENTIN [Concomitant]
     Dosage: UNK UKN, UNK
  9. NEURONTIN [Concomitant]
     Indication: NEUROPATHY PERIPHERAL
     Dosage: 600 MG, QHS
     Route: 048
  10. TIZANIDINE HYDROCHLORIDE [Concomitant]
     Indication: MUSCLE SPASMS
     Dosage: 4 G, QD
     Route: 048

REACTIONS (6)
  - GAIT DISTURBANCE [None]
  - NECK PAIN [None]
  - DRUG INEFFECTIVE [None]
  - MULTIPLE SCLEROSIS RELAPSE [None]
  - MUSCULOSKELETAL STIFFNESS [None]
  - MALAISE [None]
